FAERS Safety Report 6915234-1 (Version None)
Quarter: 2010Q3

REPORT INFORMATION
  Report Type: 
  Country: None (occurrence: None)
  Receive Date: 20100804
  Receipt Date: 20100804
  Transmission Date: 20110219
  Serious: Yes (Life-Threatening, Other)
  Sender: FDA-Public Use
  Company Number: None

PATIENT
  Age: 50 Year
  Sex: Female
  Weight: 136.0791 kg

DRUGS (2)
  1. LYRICA [Suspect]
     Indication: FIBROMYALGIA
     Dosage: 75 MG 2X DAY
     Dates: start: 20100401, end: 20100601
  2. LYRICA [Suspect]
     Indication: NEUROPATHY PERIPHERAL
     Dosage: 75 MG 2X DAY
     Dates: start: 20100401, end: 20100601

REACTIONS (4)
  - CRYING [None]
  - MUSCULOSKELETAL DISORDER [None]
  - PAIN [None]
  - SUICIDAL IDEATION [None]
